FAERS Safety Report 5384224-5 (Version None)
Quarter: 2007Q3

REPORT INFORMATION
  Report Type: 
  Country: None (occurrence: None)
  Receive Date: 20070711
  Receipt Date: 20070605
  Transmission Date: 20080115
  Serious: Yes (Hospitalization)
  Sender: FDA-Public Use
  Company Number: FR-BRISTOL-MYERS SQUIBB COMPANY-13769971

PATIENT
  Age: 61 Year
  Sex: Male

DRUGS (7)
  1. LISODREN [Suspect]
     Indication: ADRENOCORTICAL CARCINOMA
     Route: 048
     Dates: start: 20070321, end: 20070328
  2. LOSARTAN POTASSIUM AND HYDROCHLOROTHIAZIDE [Concomitant]
  3. ALDACTONE [Concomitant]
  4. AMLODIPINE [Concomitant]
  5. LANTUS [Concomitant]
  6. EFFEXOR [Concomitant]
  7. DURAGESIC-100 [Concomitant]

REACTIONS (4)
  - CHOLESTASIS [None]
  - COAGULOPATHY [None]
  - HAEMOPTYSIS [None]
  - RASH [None]
